FAERS Safety Report 10402310 (Version 1)
Quarter: 2014Q3

REPORT INFORMATION
  Report Type: Report from Study
  Country: US (occurrence: US)
  Receive Date: 20140822
  Receipt Date: 20140822
  Transmission Date: 20150326
  Serious: Yes (Other)
  Sender: FDA-Public Use
  Company Number: US-ROCHE-1453385

PATIENT
  Age: 70 Year
  Sex: Male

DRUGS (1)
  1. BEVACIZUMAB [Suspect]
     Active Substance: BEVACIZUMAB
     Indication: RENAL CELL CARCINOMA
     Dosage: 2 DOSES
     Route: 065

REACTIONS (6)
  - Proteinuria [Recovered/Resolved]
  - Hypertension [Recovered/Resolved]
  - Thrombotic microangiopathy [Unknown]
  - Thrombocytopenia [Unknown]
  - Renal impairment [Recovered/Resolved]
  - Haemolytic anaemia [Unknown]
